FAERS Safety Report 10682145 (Version 1)
Quarter: 2014Q4

REPORT INFORMATION
  Report Type: Spontaneous
  Country: US (occurrence: None)
  Receive Date: 20141229
  Receipt Date: 20141229
  Transmission Date: 20150529
  Serious: Yes (Disabling, Other)
  Sender: FDA-Public Use
  Company Number: None

PATIENT
  Age: 54 Year
  Sex: Female
  Weight: 120.2 kg

DRUGS (1)
  1. IC LOSARTAN POTASSIUM [Suspect]
     Active Substance: LOSARTAN POTASSIUM
     Indication: HYPERTENSION
     Dosage: ONE, ONCE DAILY
     Route: 048

REACTIONS (2)
  - Swelling face [None]
  - Dyspepsia [None]

NARRATIVE: CASE EVENT DATE: 20141224
